FAERS Safety Report 16623773 (Version 1)
Quarter: 2019Q3

REPORT INFORMATION
  Report Type: Spontaneous
  Country: US (occurrence: US)
  Receive Date: 20190724
  Receipt Date: 20190724
  Transmission Date: 20191004
  Serious: No
  Sender: FDA-Public Use
  Company Number: US-ACCORD-118498

PATIENT
  Sex: Female

DRUGS (1)
  1. AMITRIPTYLINE [Suspect]
     Active Substance: AMITRIPTYLINE
     Indication: DEPRESSION
     Dosage: STRENGTH: 10 MG?DOSE: 10 MG ONCE A DAY
     Route: 048
     Dates: start: 20190301, end: 20190328

REACTIONS (2)
  - Product substitution issue [Unknown]
  - Sleep disorder [Not Recovered/Not Resolved]
